FAERS Safety Report 15482354 (Version 1)
Quarter: 2018Q4

REPORT INFORMATION
  Report Type: Spontaneous
  Country: CN (occurrence: CN)
  Receive Date: 20181010
  Receipt Date: 20181010
  Transmission Date: 20190205
  Serious: Yes (Hospitalization)
  Sender: FDA-Public Use
  Company Number: CN-ASTRAZENECA-2018SF31387

PATIENT
  Age: 24472 Day
  Sex: Male

DRUGS (4)
  1. INSULIN [Concomitant]
     Active Substance: INSULIN NOS
     Indication: PANCREATITIS
     Route: 042
     Dates: start: 20180202, end: 20180217
  2. ESOMEPRAZOLE SODIUM. [Suspect]
     Active Substance: ESOMEPRAZOLE SODIUM
     Indication: HYPERCHLORHYDRIA
     Route: 041
     Dates: start: 20180202, end: 20180207
  3. OCTREOTIDE ACETATE. [Suspect]
     Active Substance: OCTREOTIDE ACETATE
     Indication: PANCREATIC DISORDER
     Route: 065
     Dates: start: 20180202, end: 20180217
  4. ULINASTATIN [Suspect]
     Active Substance: ULINASTATIN
     Indication: INFLAMMATION
     Route: 041
     Dates: start: 20180202, end: 20180217

REACTIONS (1)
  - Hyperglycaemia [Unknown]

NARRATIVE: CASE EVENT DATE: 20180206
